FAERS Safety Report 9989742 (Version 1)
Quarter: 2014Q1

REPORT INFORMATION
  Report Type: Spontaneous
  Country: US (occurrence: None)
  Receive Date: 20140123
  Receipt Date: 20140123
  Transmission Date: 20141002
  Serious: Yes (Hospitalization)
  Sender: FDA-Public Use
  Company Number: UTC-038358

PATIENT
  Age: 30 Year
  Sex: Female
  Weight: 90.9 kg

DRUGS (5)
  1. REMODULIN [Suspect]
     Indication: PULMONARY ARTERIAL HYPERTENSION
     Dosage: 108 UG/KG (0.075 UG/KG,L IN 1 MIN),INTRAVENOUS DRIP
     Route: 041
     Dates: start: 20110826
  2. ADCIRCA(TADALAFIL)(UNKNOWN) [Concomitant]
  3. COUMADIN (WARFARIN SODIUM)(UNKNOWN) [Concomitant]
  4. LETAIRIS (AMBRISENTAN)(UNKNOWN) [Concomitant]
  5. TRACLEER (BOSENTAN)(UNKNOWN) [Concomitant]

REACTIONS (2)
  - Device related infection [None]
  - Injection site haemorrhage [None]
